FAERS Safety Report 10706823 (Version 1)
Quarter: 2015Q1

REPORT INFORMATION
  Report Type: Spontaneous
  Country: SE (occurrence: SE)
  Receive Date: 20150113
  Receipt Date: 20150113
  Transmission Date: 20150721
  Serious: Yes (Hospitalization)
  Sender: FDA-Public Use
  Company Number: SE-PFIZER INC-2015006132

PATIENT
  Age: 60 Year
  Sex: Male

DRUGS (1)
  1. INLYTA [Suspect]
     Active Substance: AXITINIB
     Indication: RENAL CANCER METASTATIC
     Dosage: UNK
     Dates: start: 201405, end: 20150105

REACTIONS (6)
  - Confusional state [Unknown]
  - Fall [Unknown]
  - Aggression [Unknown]
  - Aphasia [Unknown]
  - Personality change [Unknown]
  - Disorientation [Unknown]

NARRATIVE: CASE EVENT DATE: 201501
